FAERS Safety Report 9387750 (Version 1)
Quarter: 2013Q3

REPORT INFORMATION
  Report Type: Spontaneous
  Country: PT (occurrence: PT)
  Receive Date: 20130708
  Receipt Date: 20130708
  Transmission Date: 20140515
  Serious: Yes (Other)
  Sender: FDA-Public Use
  Company Number: PT-ASTRAZENECA-2013SE49117

PATIENT
  Age: 28 Year
  Sex: Female

DRUGS (4)
  1. ROPIVACAINE [Suspect]
  2. ROPIVACAINE [Suspect]
  3. SUFENTANYL [Suspect]
  4. SUFENTANYL [Suspect]

REACTIONS (5)
  - Overdose [Unknown]
  - Incorrect route of drug administration [Unknown]
  - Muscular weakness [Unknown]
  - Oropharyngeal discomfort [Unknown]
  - Pain [Unknown]
